FAERS Safety Report 8561887-4 (Version None)
Quarter: 2012Q3

REPORT INFORMATION
  Report Type: 
  Country: None (occurrence: None)
  Receive Date: 20120802
  Receipt Date: 20120724
  Transmission Date: 20120928
  Serious: No
  Sender: FDA-Public Use
  Company Number: US-AMGEN-USASP2011019380

PATIENT
  Age: 61 Year
  Sex: Female

DRUGS (2)
  1. PREDNISONE [Concomitant]
  2. ENBREL [Suspect]
     Indication: RHEUMATOID ARTHRITIS
     Dosage: 25 MG, QWK
     Dates: start: 20060101

REACTIONS (2)
  - ASTHMA [None]
  - BRONCHITIS [None]
